FAERS Safety Report 21399293 (Version 1)
Quarter: 2022Q4

REPORT INFORMATION
  Report Type: Spontaneous
  Country: DE (occurrence: DE)
  Receive Date: 20221001
  Receipt Date: 20221001
  Transmission Date: 20230112
  Serious: Yes (Hospitalization)
  Sender: FDA-Public Use
  Company Number: DE-ADRED-07644-02

PATIENT
  Age: 62 Year
  Sex: Female
  Weight: 41 kg

DRUGS (9)
  1. PREDNISOLONE [Suspect]
     Active Substance: PREDNISOLONE
     Indication: Product used for unknown indication
     Dosage: 20 MILLIGRAM DAILY; 20 MG, 1-0-0-0
  2. BECLOMETHASONE\FORMOTEROL [Suspect]
     Active Substance: BECLOMETHASONE\FORMOTEROL
     Indication: Product used for unknown indication
     Dosage: 4 DOSAGE FORMS DAILY; 100|6 MCG, 2-0-2-0
  3. FENTANYL [Concomitant]
     Active Substance: FENTANYL
     Indication: Product used for unknown indication
     Dosage: 62.5 MCG, SCHEME
  4. METAMIZOL [Concomitant]
     Active Substance: METAMIZOLE SODIUM
     Indication: Product used for unknown indication
     Dosage: 3 GTT DAILY; 1 DROPS, 30-30-30-0
  5. HYDROMORPHONE [Concomitant]
     Active Substance: HYDROMORPHONE
     Indication: Product used for unknown indication
     Dosage: 4 MILLIGRAM DAILY; 2 MG, 1-0-1-0
  6. PANTOPRAZOLE SODIUM [Concomitant]
     Active Substance: PANTOPRAZOLE SODIUM
     Indication: Product used for unknown indication
     Dosage: 80 MILLIGRAM DAILY; 40 MG, 1-0-1-0
  7. NEBIVOLOL [Concomitant]
     Active Substance: NEBIVOLOL
     Indication: Product used for unknown indication
     Dosage: 5 MILLIGRAM DAILY; 5 MG, 1-0-0-0
  8. CLONIDINE [Concomitant]
     Active Substance: CLONIDINE
     Indication: Product used for unknown indication
     Dosage: .225 MILLIGRAM DAILY; 0.075 MG, 1-1-1-0
  9. TORSEMIDE [Concomitant]
     Active Substance: TORSEMIDE
     Indication: Product used for unknown indication
     Dosage: 5 MILLIGRAM DAILY; 5 MG, 0-1-0-0

REACTIONS (16)
  - Nausea [Unknown]
  - Hypoglycaemia [Unknown]
  - Dyspnoea [Unknown]
  - Hypertension [Unknown]
  - Back pain [Unknown]
  - General physical health deterioration [Unknown]
  - Cachexia [Unknown]
  - Pain [Unknown]
  - Sepsis [Unknown]
  - Systemic infection [Unknown]
  - Electrolyte imbalance [Unknown]
  - Abdominal pain upper [Unknown]
  - Pneumonia [Unknown]
  - Tachycardia [Unknown]
  - Sepsis [Unknown]
  - Renal impairment [Unknown]
